FAERS Safety Report 4357431-8 (Version None)
Quarter: 2004Q2

REPORT INFORMATION
  Report Type: 
  Country: None (occurrence: None)
  Receive Date: 20040506
  Receipt Date: 20040423
  Transmission Date: 20050107
  Serious: Yes (Hospitalization)
  Sender: FDA-Public Use
  Company Number: HQWYE581223APR04

PATIENT
  Age: 88 Year
  Sex: Female

DRUGS (9)
  1. CORDARONE [Suspect]
     Indication: ATRIAL FIBRILLATION
     Dosage: SEE IMAGE
     Route: 048
     Dates: start: 20040306, end: 20040314
  2. CORDARONE [Suspect]
     Indication: ATRIAL FLUTTER
     Dosage: SEE IMAGE
     Route: 048
     Dates: start: 20040306, end: 20040314
  3. CORDARONE [Suspect]
     Indication: ATRIAL FIBRILLATION
     Dosage: SEE IMAGE
     Route: 048
     Dates: start: 20040315
  4. CORDARONE [Suspect]
     Indication: ATRIAL FLUTTER
     Dosage: SEE IMAGE
     Route: 048
     Dates: start: 20040315
  5. PREVISCAN (FLUINDIONE) [Concomitant]
     Indication: ATRIAL FIBRILLATION
     Dosage: 5 MG 1 X PER 1 DAY, ORAL
     Route: 048
     Dates: start: 20040219, end: 20040308
  6. PREVISCAN (FLUINDIONE) [Concomitant]
     Indication: ATRIAL FLUTTER
     Dosage: 5 MG 1 X PER 1 DAY, ORAL
     Route: 048
     Dates: start: 20040219, end: 20040308
  7. MEMANTINE HCL [Concomitant]
  8. COAPROVEL (IRBESARTAN/HYDROCHLOROTHIAZIDE) [Concomitant]
  9. LIORESAL [Concomitant]

REACTIONS (3)
  - DRUG INTERACTION [None]
  - HAEMATOMA [None]
  - INTERNATIONAL NORMALISED RATIO INCREASED [None]
